FAERS Safety Report 15149949 (Version 3)
Quarter: 2019Q1

REPORT INFORMATION
  Report Type: Spontaneous
  Country: US (occurrence: US)
  Receive Date: 20180716
  Receipt Date: 20190211
  Transmission Date: 20190417
  Serious: Yes (Other)
  Sender: FDA-Public Use
  Company Number: US-PFIZER INC-2018281339

PATIENT
  Age: 64 Year
  Sex: Female

DRUGS (1)
  1. RELPAX [Suspect]
     Active Substance: ELETRIPTAN HYDROBROMIDE
     Indication: MIGRAINE
     Dosage: 40 MG, UNK
     Dates: end: 201811

REACTIONS (4)
  - Blindness [Unknown]
  - Lower limb fracture [Not Recovered/Not Resolved]
  - Asthenia [Unknown]
  - Lung infection [Not Recovered/Not Resolved]
